FAERS Safety Report 8353189 (Version 4)
Quarter: 2012Q4

REPORT INFORMATION
  Report Type: 
  Country: US (occurrence: US)
  Receive Date: 20120125
  Receipt Date: 20120904
  Transmission Date: 20130627
  Serious: Yes (Other)
  Sender: FDA-Public Use
  Company Number: US-CELGENEUS-163-21880-12012025

PATIENT
  Age: 80 Year
  Sex: Female

DRUGS (2)
  1. REVLIMID [Suspect]
     Indication: MYELODYSPLASTIC SYNDROME
     Dosage: 10 Milligram
     Route: 048
     Dates: start: 20110125, end: 20111114
  2. REVLIMID [Suspect]
     Dosage: 10 Milligram
     Route: 048
     Dates: start: 20120129, end: 201208

REACTIONS (5)
  - Venous stasis retinopathy [Recovering/Resolving]
  - Macular oedema [Recovering/Resolving]
  - Retinal haemorrhage [Recovered/Resolved]
  - Cataract [Recovered/Resolved]
  - Diarrhoea [Recovering/Resolving]
